FAERS Safety Report 5075238-3 (Version None)
Quarter: 2006Q3

REPORT INFORMATION
  Report Type: 
  Country: None (occurrence: None)
  Receive Date: 20060809
  Receipt Date: 20060801
  Transmission Date: 20061208
  Serious: Yes (Life-Threatening, Hospitalization)
  Sender: FDA-Public Use
  Company Number: PHRM2006FR02222

PATIENT
  Age: 1 Day
  Sex: Male
  Weight: 3.46 kg

DRUGS (1)
  1. VOLTAREN [Suspect]
     Route: 064

REACTIONS (9)
  - AORTIC THROMBOSIS [None]
  - CYANOSIS NEONATAL [None]
  - DRUG EXPOSURE DURING PREGNANCY [None]
  - INCUBATOR THERAPY [None]
  - LIFE SUPPORT [None]
  - NEONATAL CARDIAC FAILURE [None]
  - NEONATAL HEPATOMEGALY [None]
  - NEONATAL RESPIRATORY DISTRESS SYNDROME [None]
  - PULMONARY HYPERTENSION [None]
